FAERS Safety Report 4997809-2 (Version None)
Quarter: 2006Q2

REPORT INFORMATION
  Report Type: 
  Country: None (occurrence: None)
  Receive Date: 20060510
  Receipt Date: 20051129
  Transmission Date: 20061013
  Serious: Yes (Death)
  Sender: FDA-Public Use
  Company Number: US-BRISTOL-MYERS SQUIBB COMPANY-13198809

PATIENT
  Sex: Male

DRUGS (3)
  1. GLUCOPHAGE [Suspect]
  2. MONOPRIL [Suspect]
  3. PLAVIX [Suspect]

REACTIONS (1)
  - DEATH [None]
